FAERS Safety Report 23810713 (Version 1)
Quarter: 2024Q2

REPORT INFORMATION
  Report Type: Other
  Country: JP (occurrence: None)
  Receive Date: 20240502
  Receipt Date: 20240502
  Transmission Date: 20240716
  Serious: Yes (Hospitalization, Other)
  Sender: FDA-Public Use
  Company Number: JP-Invatech-000332

PATIENT
  Age: 9 Year
  Sex: Female

DRUGS (2)
  1. NAPROXEN SODIUM [Suspect]
     Active Substance: NAPROXEN\NAPROXEN SODIUM
     Indication: Arthralgia
     Dosage: 150 MG/DAY
  2. NAPROXEN SODIUM [Suspect]
     Active Substance: NAPROXEN\NAPROXEN SODIUM
     Indication: Arthralgia

REACTIONS (5)
  - Erythema nodosum [Recovered/Resolved]
  - Condition aggravated [Recovered/Resolved]
  - Osteomyelitis chronic [Recovered/Resolved]
  - Therapy partial responder [Recovered/Resolved]
  - Treatment failure [Recovered/Resolved]
